FAERS Safety Report 24411072 (Version 1)
Quarter: 2024Q4

REPORT INFORMATION
  Report Type: Spontaneous
  Country: US (occurrence: US)
  Receive Date: 20241008
  Receipt Date: 20241008
  Transmission Date: 20250114
  Serious: Yes (Other)
  Sender: PFIZER
  Company Number: US-PFIZER INC-202400269647

PATIENT
  Age: 51 Year
  Sex: Male
  Weight: 102.06 kg

DRUGS (1)
  1. COLESTIPOL HYDROCHLORIDE [Suspect]
     Active Substance: COLESTIPOL HYDROCHLORIDE
     Indication: Pollakiuria
     Dosage: EVERY MORNING
     Dates: start: 199306

REACTIONS (2)
  - Gallbladder operation [Unknown]
  - Off label use [Unknown]

NARRATIVE: CASE EVENT DATE: 19930601
